FAERS Safety Report 10793915 (Version 1)
Quarter: 2015Q1

REPORT INFORMATION
  Report Type: Spontaneous
  Country: US (occurrence: US)
  Receive Date: 20150213
  Receipt Date: 20150213
  Transmission Date: 20150721
  Serious: Yes (Other)
  Sender: FDA-Public Use
  Company Number: US-PFIZER INC-2015045447

PATIENT
  Age: 40 Year
  Sex: Female
  Weight: 82 kg

DRUGS (1)
  1. ROBITUSSIN MAXIMUM STRENGTH NIGHTTIME COUGH DM [Suspect]
     Active Substance: DEXTROMETHORPHAN HYDROBROMIDE\DOXYLAMINE SUCCINATE
     Indication: NASOPHARYNGITIS
     Dosage: UNK
     Dates: start: 20150130, end: 20150130

REACTIONS (6)
  - Paraesthesia oral [Not Recovered/Not Resolved]
  - Cough [Not Recovered/Not Resolved]
  - Swollen tongue [Not Recovered/Not Resolved]
  - Headache [Not Recovered/Not Resolved]
  - Mental impairment [Recovered/Resolved]
  - Feeling abnormal [Recovered/Resolved]

NARRATIVE: CASE EVENT DATE: 20150130
